FAERS Safety Report 25361171 (Version 1)
Quarter: 2025Q2

REPORT INFORMATION
  Report Type: Spontaneous
  Country: JP (occurrence: JP)
  Receive Date: 20250527
  Receipt Date: 20250527
  Transmission Date: 20250716
  Serious: Yes (Other)
  Sender: ALEXION PHARMACEUTICALS
  Company Number: JP-ASTRAZENECA-250050927_032810_P_1

PATIENT
  Age: 81 Year

DRUGS (2)
  1. BREZTRI [Suspect]
     Active Substance: BUDESONIDE\FORMOTEROL\GLYCOPYRROLATE
     Indication: Chronic obstructive pulmonary disease
  2. BUDESONIDE\FORMOTEROL [Concomitant]
     Active Substance: BUDESONIDE\FORMOTEROL
     Indication: Chronic obstructive pulmonary disease

REACTIONS (6)
  - Aspiration [Unknown]
  - Cough [Unknown]
  - Aortic aneurysm [Unknown]
  - Heat illness [Unknown]
  - Product complaint [Unknown]
  - Off label use [Unknown]
